FAERS Safety Report 5621665-2 (Version None)
Quarter: 2008Q1

REPORT INFORMATION
  Report Type: 
  Country: None (occurrence: None)
  Receive Date: 20080131
  Receipt Date: 20080121
  Transmission Date: 20080703
  Serious: Yes (Hospitalization)
  Sender: FDA-Public Use
  Company Number: WAES 0801GBR00078

PATIENT
  Sex: Male

DRUGS (5)
  1. TAB RALTEGRAVIR [Suspect]
     Dosage: 400 MG PO
     Route: 048
     Dates: start: 20071216
  2. DARUNAVIR [Suspect]
     Dates: start: 20071216, end: 20080104
  3. LAMIVUDINE [Suspect]
     Dates: start: 20071216
  4. MARAVIROC [Suspect]
     Dates: start: 20071216
  5. CYCLOPHOSPHAMIDE [Suspect]
     Dates: start: 20071216, end: 20080104

REACTIONS (1)
  - STEVENS-JOHNSON SYNDROME [None]
